FAERS Safety Report 6581925-8 (Version None)
Quarter: 2010Q1

REPORT INFORMATION
  Report Type: 
  Country: None (occurrence: None)
  Receive Date: 20100212
  Receipt Date: 20100212
  Transmission Date: 20100710
  Serious: Yes (Hospitalization)
  Sender: FDA-Public Use
  Company Number: None

PATIENT
  Age: 65 Year
  Sex: Male
  Weight: 76 kg

DRUGS (3)
  1. BELLADONNA/ OPIUM [Suspect]
     Indication: PAIN
     Dosage: 60/15 MG PRN RECTAL
     Route: 054
     Dates: start: 20090724, end: 20090803
  2. BELLADONNA/ OPIUM [Suspect]
     Indication: RECTAL SPASM
     Dosage: 60/15 MG PRN RECTAL
     Route: 054
     Dates: start: 20090724, end: 20090803
  3. OXYCODONE AND ACETAMINOPHEN [Suspect]
     Indication: PAIN
     Dosage: 5/325 MG PRN PO
     Route: 048
     Dates: start: 20090728, end: 20090803

REACTIONS (5)
  - ASTHENIA [None]
  - CONFUSIONAL STATE [None]
  - DECREASED APPETITE [None]
  - HALLUCINATION [None]
  - SEDATION [None]
